FAERS Safety Report 7447559-8 (Version None)
Quarter: 2011Q2

REPORT INFORMATION
  Report Type: 
  Country: None (occurrence: None)
  Receive Date: 20110429
  Receipt Date: 20110121
  Transmission Date: 20111010
  Serious: No
  Sender: FDA-Public Use
  Company Number: US-ASTRAZENECA-2011SE04215

PATIENT
  Sex: Female

DRUGS (3)
  1. NEXIUM [Suspect]
  2. PRILOSEC OTC [Suspect]
     Route: 048
  3. PRILOSEC [Suspect]

REACTIONS (5)
  - FEELING ABNORMAL [None]
  - MALAISE [None]
  - DRUG DOSE OMISSION [None]
  - GASTROOESOPHAGEAL REFLUX DISEASE [None]
  - DRUG INEFFECTIVE [None]
